FAERS Safety Report 7573471-X (Version None)
Quarter: 2011Q2

REPORT INFORMATION
  Report Type: 
  Country: None (occurrence: None)
  Receive Date: 20110621
  Receipt Date: 20110608
  Transmission Date: 20111010
  Serious: Yes (Other)
  Sender: FDA-Public Use
  Company Number: US-1186288

PATIENT
  Age: 52 Year
  Sex: Male
  Weight: 88.4514 kg

DRUGS (2)
  1. LATANOPROST [Suspect]
     Indication: INTRAOCULAR PRESSURE INCREASED
     Dosage: 1 GTT QD, OPTHALMIC
     Route: 047
     Dates: start: 20110513, end: 20110516
  2. COMBIGAN [Concomitant]

REACTIONS (6)
  - ULCERATIVE KERATITIS [None]
  - CORNEAL OEDEMA [None]
  - HEADACHE [None]
  - VISUAL ACUITY REDUCED [None]
  - EYE PAIN [None]
  - BLINDNESS UNILATERAL [None]
